FAERS Safety Report 9972785 (Version 1)
Quarter: 2014Q1

REPORT INFORMATION
  Report Type: Spontaneous
  Country: AT (occurrence: AT)
  Receive Date: 20140306
  Receipt Date: 20140306
  Transmission Date: 20141002
  Serious: Yes (Other)
  Sender: FDA-Public Use
  Company Number: AT-JNJFOC-20140217719

PATIENT
  Age: 53 Year
  Sex: Female

DRUGS (2)
  1. YONDELIS [Suspect]
     Indication: SARCOMA UTERUS
     Route: 042
  2. CAELYX [Suspect]
     Indication: SARCOMA UTERUS
     Route: 065

REACTIONS (3)
  - Pneumonitis [Unknown]
  - Incorrect dose administered [Unknown]
  - Off label use [Unknown]
